FAERS Safety Report 19574848 (Version 1)
Quarter: 2021Q3

REPORT INFORMATION
  Report Type: Report from Study
  Country: CA (occurrence: CA)
  Receive Date: 20210719
  Receipt Date: 20210719
  Transmission Date: 20211014
  Serious: Yes (Disabling)
  Sender: FDA-Public Use
  Company Number: CA-SA-2014SA120598

PATIENT
  Age: 52 Year
  Sex: Female

DRUGS (11)
  1. ERGOCALCIFEROL. [Concomitant]
     Active Substance: ERGOCALCIFEROL
     Dosage: 2000 MG,QD
     Route: 048
  2. VENTOLIN [Concomitant]
     Active Substance: ALBUTEROL SULFATE
     Dosage: UNK UNK,PRN
     Route: 055
  3. TIOTROPIUM BROMIDE [Concomitant]
     Active Substance: TIOTROPIUM BROMIDE
     Dosage: UNK UNK,QD
     Route: 055
  4. CALCIUM [Concomitant]
     Active Substance: CALCIUM
     Dosage: 400 MG,QD
     Route: 048
  5. SYMBICORT [Concomitant]
     Active Substance: BUDESONIDE\FORMOTEROL FUMARATE DIHYDRATE
  6. CALCIUM [Concomitant]
     Active Substance: CALCIUM
  7. ADVAIR HFA [Concomitant]
     Active Substance: FLUTICASONE PROPIONATE\SALMETEROL XINAFOATE
     Dosage: UNK UNK,QD
     Route: 055
  8. LYRICA [Concomitant]
     Active Substance: PREGABALIN
     Dosage: 10 MG, QD
  9. TERIFLUNOMIDE. [Suspect]
     Active Substance: TERIFLUNOMIDE
     Indication: RELAPSING-REMITTING MULTIPLE SCLEROSIS
     Dosage: 14 MG, QD
     Route: 048
     Dates: start: 20140719
  10. LYRICA [Concomitant]
     Active Substance: PREGABALIN
     Dosage: 150 MG,BID
     Route: 048
  11. VENTOLIN [Concomitant]
     Active Substance: ALBUTEROL SULFATE
     Dosage: UNK, PRN

REACTIONS (9)
  - Hypoaesthesia [Not Recovered/Not Resolved]
  - Pain in extremity [Not Recovered/Not Resolved]
  - Memory impairment [Not Recovered/Not Resolved]
  - Impaired work ability [Not Recovered/Not Resolved]
  - Alopecia [Recovering/Resolving]
  - Somnolence [Not Recovered/Not Resolved]
  - Fatigue [Not Recovered/Not Resolved]
  - Blood cholesterol abnormal [Recovering/Resolving]
  - Nocturia [Unknown]

NARRATIVE: CASE EVENT DATE: 20140823
